FAERS Safety Report 4561176-9 (Version None)
Quarter: 2005Q1

REPORT INFORMATION
  Report Type: 
  Country: None (occurrence: None)
  Receive Date: 20050126
  Receipt Date: 20050120
  Transmission Date: 20050727
  Serious: Yes (Life-Threatening)
  Sender: FDA-Public Use
  Company Number: 200510266FR

PATIENT
  Age: 75 Year
  Sex: Male

DRUGS (1)
  1. FLAGYL [Suspect]
     Route: 042
     Dates: start: 20021215

REACTIONS (7)
  - CROSS SENSITIVITY REACTION [None]
  - DISCOMFORT [None]
  - LOSS OF CONSCIOUSNESS [None]
  - MEDICATION ERROR [None]
  - RESPIRATORY DISORDER [None]
  - SHOCK [None]
  - SUFFOCATION FEELING [None]
